FAERS Safety Report 17894072 (Version 1)
Quarter: 2020Q2

REPORT INFORMATION
  Report Type: Other
  Country: US (occurrence: US)
  Receive Date: 20200615
  Receipt Date: 20200615
  Transmission Date: 20200714
  Serious: Yes (Death)
  Sender: FDA-Public Use
  Company Number: US-NUVO PHARMACEUTICALS INC-2085815

PATIENT
  Age: 44 Year
  Sex: Male

DRUGS (4)
  1. ALCOHOL. [Suspect]
     Active Substance: ALCOHOL
     Route: 065
  2. OXYCODONE HYDROCHLORIDE. [Suspect]
     Active Substance: OXYCODONE HYDROCHLORIDE
     Indication: PRODUCT USED FOR UNKNOWN INDICATION
     Route: 065
  3. METHYLONE [Suspect]
     Active Substance: METHYLPREDNISOLONE
     Route: 065
  4. COCAINE HYDROCHLORIDE. [Suspect]
     Active Substance: COCAINE HYDROCHLORIDE
     Route: 065

REACTIONS (2)
  - Intentional product misuse [Fatal]
  - Toxicity to various agents [Fatal]
